FAERS Safety Report 5143666-3 (Version None)
Quarter: 2006Q4

REPORT INFORMATION
  Report Type: 
  Country: None (occurrence: None)
  Receive Date: 20061103
  Receipt Date: 20061027
  Transmission Date: 20070319
  Serious: Yes (Other)
  Sender: FDA-Public Use
  Company Number: IT-ROXANE LABORATORIES, INC-2006-DE-05707GD

PATIENT
  Sex: Male

DRUGS (4)
  1. MORPHINE [Suspect]
     Indication: PAIN
     Dosage: 30 MCG/KG/H, START OF WEANING ON 9TH DAY, 18 MCG/KG/H
  2. PHENOBARBITAL TAB [Concomitant]
     Indication: HYPERTONIA
     Dosage: 20 MG/KG/DAY LOADING DOSE AND 5 MG/KG/DAY MAINTENANCE DOSE
  3. PHENOBARBITAL TAB [Concomitant]
     Indication: MYOCLONUS
  4. PHENOBARBITAL TAB [Concomitant]
     Indication: CONVULSION

REACTIONS (8)
  - DRUG WITHDRAWAL SYNDROME [None]
  - HYPERTONIA [None]
  - MYOCLONUS [None]
  - PYREXIA [None]
  - REGURGITATION OF FOOD [None]
  - TACHYCARDIA [None]
  - TACHYPNOEA [None]
  - TREMOR [None]
